FAERS Safety Report 22334448 (Version 1)
Quarter: 2023Q2

REPORT INFORMATION
  Report Type: Spontaneous
  Country: US (occurrence: US)
  Receive Date: 20230517
  Receipt Date: 20230517
  Transmission Date: 20230721
  Serious: Yes (Other)
  Sender: FDA-Public Use
  Company Number: US-STRIDES ARCOLAB LIMITED-2023SP007220

PATIENT
  Sex: Male

DRUGS (3)
  1. TACROLIMUS [Interacting]
     Active Substance: TACROLIMUS
     Indication: Immunosuppressant drug therapy
     Dosage: UNK
     Route: 065
  2. TACROLIMUS [Interacting]
     Active Substance: TACROLIMUS
     Indication: Renal transplant
  3. VORICONAZOLE [Interacting]
     Active Substance: VORICONAZOLE
     Indication: Histoplasmosis
     Dosage: UNK
     Route: 065

REACTIONS (3)
  - Hyperkalaemia [Unknown]
  - Drug interaction [Unknown]
  - Histoplasmosis [Unknown]
